FAERS Safety Report 8111646-1 (Version None)
Quarter: 2012Q1

REPORT INFORMATION
  Report Type: 
  Country: None (occurrence: None)
  Receive Date: 20120203
  Receipt Date: 20120125
  Transmission Date: 20120608
  Serious: Yes (Hospitalization)
  Sender: FDA-Public Use
  Company Number: DE-PFIZER INC-2009252996

PATIENT
  Age: 80 Year
  Sex: Female
  Weight: 59 kg

DRUGS (19)
  1. TORSEMIDE [Suspect]
     Indication: HYPERTENSION
     Dosage: 200 MG, 1X/DAY
     Dates: start: 20081101
  2. RAMIPRIL [Suspect]
     Indication: HYPERTENSION
     Dosage: 2.5 MG, 1X/DAY
     Route: 048
     Dates: start: 20000101
  3. PREDNISOLONE [Concomitant]
     Dosage: 50 MG, UNK
     Dates: start: 20090526, end: 20090526
  4. METHOTREXATE [Suspect]
     Indication: RHEUMATOID ARTHRITIS
     Dosage: 10 ML, 1X/DAY
     Route: 058
     Dates: start: 20081101, end: 20090504
  5. FALITHROM [Suspect]
     Indication: TACHYARRHYTHMIA
     Dosage: 3 MG, 1X/DAY
     Route: 048
     Dates: start: 20081101, end: 20090504
  6. OMEPRAZOLE [Suspect]
     Indication: PROPHYLAXIS AGAINST GASTROINTESTINAL ULCER
     Dosage: 20 MG, 1X/DAY
     Route: 048
     Dates: start: 20081101, end: 20090503
  7. SEROQUEL [Suspect]
     Indication: RESTLESSNESS
     Dosage: 25 MG, 1X/DAY
     Route: 048
     Dates: start: 20081101
  8. DREISAFER [Concomitant]
     Indication: IRON DEFICIENCY
     Dosage: 100 MG, 1X/DAY
     Route: 048
     Dates: start: 20081101, end: 20090504
  9. XIPAMIDE [Concomitant]
     Indication: HYPERTENSION
     Dosage: 10 MG, UNK
     Route: 048
     Dates: start: 20081101, end: 20090503
  10. SIMVASTATIN [Suspect]
     Indication: HYPERLIPIDAEMIA
     Dosage: 40 MG, 1X/DAY
     Route: 048
     Dates: start: 20081101, end: 20090505
  11. PREDNISOLONE [Concomitant]
     Dosage: 100 MG, UNK
     Dates: start: 20090520, end: 20090525
  12. ACTONEL PLUS CALCIUM D [Concomitant]
     Indication: OSTEOPOROSIS
     Dosage: 1 DF, 1X/DAY, 35 MG RISEDRONATE + 1000 MG CALCIUM + 880 IU VIT. D
     Dates: start: 20040101, end: 20090505
  13. DIGITOXIN [Concomitant]
     Indication: TACHYARRHYTHMIA
     Dosage: 0.07 MG, 1X/DAY
     Route: 048
     Dates: start: 20081101
  14. FOLIC ACID [Concomitant]
     Indication: IMMUNOSUPPRESSANT DRUG THERAPY
     Dosage: 1 DF, 1X/DAY
     Route: 048
     Dates: start: 20081101, end: 20090504
  15. PREDNISOLONE [Concomitant]
     Indication: RHEUMATOID ARTHRITIS
     Dosage: 5 MG, UNK
     Route: 048
     Dates: start: 20020101, end: 20090519
  16. AMLODIPINE BESYLATE [Suspect]
     Indication: HYPERTENSION
     Dosage: 5 MG, 1X/DAY
     Route: 048
     Dates: start: 20081101, end: 20090515
  17. CORDANUM [Suspect]
     Indication: TACHYARRHYTHMIA
     Dosage: 50 MG, 1X/DAY
     Route: 048
     Dates: start: 20081101, end: 20090504
  18. PREDNISOLONE [Concomitant]
     Dosage: 25 MG, UNK
     Dates: start: 20090527, end: 20090101
  19. PREDNISOLONE [Concomitant]
     Dosage: 5 MG, 1X/DAY
     Dates: start: 20090527

REACTIONS (3)
  - ALVEOLITIS [None]
  - GAMMA-GLUTAMYLTRANSFERASE INCREASED [None]
  - TRANSAMINASES INCREASED [None]
